FAERS Safety Report 19791394 (Version 2)
Quarter: 2021Q4

REPORT INFORMATION
  Report Type: Spontaneous
  Country: ZA (occurrence: ZA)
  Receive Date: 20210906
  Receipt Date: 20211004
  Transmission Date: 20220304
  Serious: Yes (Hospitalization, Other)
  Sender: FDA-Public Use
  Company Number: ZA-NOVOPROD-842423

PATIENT
  Weight: 3.5 kg

DRUGS (2)
  1. TRESIBA [Suspect]
     Active Substance: INSULIN DEGLUDEC
     Indication: Product used for unknown indication
     Dosage: UNK
     Route: 064
  2. NOVORAPID [Suspect]
     Active Substance: INSULIN ASPART
     Indication: Product used for unknown indication
     Dosage: UNK
     Route: 064

REACTIONS (4)
  - Immature respiratory system [Recovered/Resolved]
  - Arrhythmia neonatal [Recovered/Resolved]
  - Premature baby [Recovered/Resolved]
  - Foetal exposure during pregnancy [Recovered/Resolved]

NARRATIVE: CASE EVENT DATE: 20210501
